FAERS Safety Report 16766846 (Version 1)
Quarter: 2019Q3

REPORT INFORMATION
  Report Type: Spontaneous
  Country: DE (occurrence: DE)
  Receive Date: 20190903
  Receipt Date: 20190903
  Transmission Date: 20191005
  Serious: Yes (Other)
  Sender: FDA-Public Use
  Company Number: DE-IBIGEN-2019.07171

PATIENT
  Sex: Male

DRUGS (10)
  1. CYTARABINE. [Suspect]
     Active Substance: CYTARABINE
     Dosage: UNKNOWN ()
     Route: 065
  2. PIPERACILLIN. [Suspect]
     Active Substance: PIPERACILLIN SODIUM
     Dosage: UNKNOWN ()
     Route: 065
  3. ACICLOVIR [Suspect]
     Active Substance: ACYCLOVIR
     Dosage: UNKNOWN ()
     Route: 065
  4. METOCLOPRAMIDE. [Suspect]
     Active Substance: METOCLOPRAMIDE
     Dosage: UNKNOWN ()
     Route: 050
  5. TAZOBACTAM [Suspect]
     Active Substance: TAZOBACTAM
     Dosage: UNKNOWN ()
     Route: 050
  6. PARACETAMOL [Suspect]
     Active Substance: ACETAMINOPHEN
     Indication: PAIN
     Dosage: GW 17+1 UNTIL GW 18+0
     Route: 065
  7. CEFUROXIME. [Suspect]
     Active Substance: CEFUROXIME
     Dosage: UNKNOWN ()
     Route: 050
  8. AMPHOTERICIN B. [Suspect]
     Active Substance: AMPHOTERICIN B
     Dosage: UNKNOWN ()
     Route: 065
  9. PARACETAMOL [Suspect]
     Active Substance: ACETAMINOPHEN
     Indication: PAIN
     Dosage: GW 27+4 UNTIL GW 27+6
     Route: 065
  10. DAUNORUBICIN [Suspect]
     Active Substance: DAUNORUBICIN
     Dosage: UNKNOWN ()
     Route: 065

REACTIONS (4)
  - Congenital pneumonia [Unknown]
  - Patent ductus arteriosus [Unknown]
  - Premature baby [Unknown]
  - Ventricular septal defect [Unknown]
